FAERS Safety Report 24023316 (Version 1)
Quarter: 2024Q2

REPORT INFORMATION
  Report Type: Report from Study
  Country: HR (occurrence: HR)
  Receive Date: 20240627
  Receipt Date: 20240627
  Transmission Date: 20240717
  Serious: No
  Sender: FDA-Public Use
  Company Number: HR-ROCHE-3500417

PATIENT
  Age: 45 Year
  Sex: Female
  Weight: 73.0 kg

DRUGS (2)
  1. ALECTINIB [Suspect]
     Active Substance: ALECTINIB
     Indication: Non-small cell lung cancer
     Dosage: PRE-STUDY ALECTINIB
     Route: 048
     Dates: start: 20190326
  2. ALECTINIB [Suspect]
     Active Substance: ALECTINIB
     Dosage: STUDY DRUG ALECTINIB
     Route: 048
     Dates: start: 20220217

REACTIONS (1)
  - Hyperbilirubinaemia [Recovering/Resolving]

NARRATIVE: CASE EVENT DATE: 20231109
